FAERS Safety Report 8419832-8 (Version None)
Quarter: 2012Q2

REPORT INFORMATION
  Report Type: 
  Country: None (occurrence: None)
  Receive Date: 20120323
  Receipt Date: 20111201
  Transmission Date: 20120825
  Serious: Yes (Other)
  Sender: FDA-Public Use
  Company Number: 163-21880-11121847

PATIENT
  Age: 69 Year
  Sex: Female

DRUGS (2)
  1. REVLIMID [Suspect]
     Indication: MYELODYSPLASTIC SYNDROME
     Dosage: 10 MG, X21 DAY, PO
     Route: 048
     Dates: start: 20111122, end: 20111129
  2. REVLIMID [Suspect]
     Indication: MULTIPLE MYELOMA
     Dosage: 10 MG, X21 DAY, PO
     Route: 048
     Dates: start: 20111122, end: 20111129

REACTIONS (5)
  - PRURITUS [None]
  - ANGIOEDEMA [None]
  - EYE SWELLING [None]
  - HAEMOGLOBIN DECREASED [None]
  - SWELLING FACE [None]
